FAERS Safety Report 8427861-3 (Version None)
Quarter: 2012Q2

REPORT INFORMATION
  Report Type: 
  Country: None (occurrence: None)
  Receive Date: 20120611
  Receipt Date: 20120531
  Transmission Date: 20120825
  Serious: Yes (Hospitalization)
  Sender: FDA-Public Use
  Company Number: US-BAXTER-2012BAX007511

PATIENT
  Sex: Female

DRUGS (1)
  1. DIANEAL [Suspect]
     Route: 033

REACTIONS (2)
  - JOINT SWELLING [None]
  - BLOOD GLUCOSE INCREASED [None]
